FAERS Safety Report 25967391 (Version 1)
Quarter: 2025Q4

REPORT INFORMATION
  Report Type: Spontaneous
  Country: EU (occurrence: EU)
  Receive Date: 20251028
  Receipt Date: 20251028
  Transmission Date: 20260118
  Serious: Yes (Other)
  Sender: ACCORD
  Company Number: None

PATIENT
  Age: 77 Year
  Sex: Female
  Weight: 105 kg

DRUGS (2)
  1. FLUOROURACIL [Suspect]
     Active Substance: FLUOROURACIL
     Indication: Anal cancer
     Dosage: STRENGTH: 50 MG/ML
     Dates: start: 20250811, end: 20250816
  2. MITOMYCIN [Suspect]
     Active Substance: MITOMYCIN
     Indication: Anal cancer
     Dosage: STRENGTH: 20 MG
     Dates: start: 20250811

REACTIONS (4)
  - Colitis ulcerative [Recovered/Resolved]
  - Abdominal pain [Recovered/Resolved]
  - Hypophagia [Recovered/Resolved]
  - Fluid intake reduced [Recovered/Resolved]

NARRATIVE: CASE EVENT DATE: 20250825
